FAERS Safety Report 4514626-8 (Version None)
Quarter: 2004Q3

REPORT INFORMATION
  Report Type: 
  Country: None (occurrence: None)
  Receive Date: 20040927
  Receipt Date: 20040205
  Transmission Date: 20050211
  Serious: No
  Sender: FDA-Public Use
  Company Number: US065900

PATIENT
  Age: 41 Year
  Sex: Female

DRUGS (7)
  1. NEULASTA [Suspect]
     Indication: CHEMOTHERAPY
     Dosage: 6 MG, 1 IN 1 DAYS, SC
     Route: 058
     Dates: start: 20040130
  2. DOXORUBICIN HCL [Concomitant]
  3. CYCLOPHOSPHAMIDE [Concomitant]
  4. DESLORATADINE [Concomitant]
  5. MONTELUKAST [Concomitant]
  6. IPRATROPIUM BROMIDE/ALBUTEROL SULFATE [Concomitant]
  7. FLUTICASONE/SALMETEROL [Concomitant]

REACTIONS (3)
  - GLOSSODYNIA [None]
  - PRURITUS [None]
  - SWOLLEN TONGUE [None]
